FAERS Safety Report 6533374-6 (Version None)
Quarter: 2010Q1

REPORT INFORMATION
  Report Type: 
  Country: None (occurrence: None)
  Receive Date: 20100111
  Receipt Date: 20100104
  Transmission Date: 20100710
  Serious: Yes (Hospitalization)
  Sender: FDA-Public Use
  Company Number: MX-ELI_LILLY_AND_COMPANY-MX201001000278

PATIENT
  Age: 61 Year
  Sex: Female
  Weight: 52 kg

DRUGS (3)
  1. FORTEO [Suspect]
     Indication: OSTEOPOROSIS
     Dosage: 20 UG, DAILY (1/D)
     Route: 058
     Dates: start: 20091001, end: 20091201
  2. FORTEO [Suspect]
     Dosage: 20 UG, DAILY (1/D)
     Route: 058
     Dates: start: 20090104
  3. EUGLUCON [Concomitant]
     Dosage: UNK, DAILY (1/D)
     Route: 065

REACTIONS (5)
  - ASTHENIA [None]
  - DIABETES MELLITUS [None]
  - FEELING ABNORMAL [None]
  - TACHYCARDIA [None]
  - TYPHOID FEVER [None]
